FAERS Safety Report 11965505 (Version 2)
Quarter: 2016Q1

REPORT INFORMATION
  Report Type: Spontaneous
  Country: IT (occurrence: IT)
  Receive Date: 20160127
  Receipt Date: 20160201
  Transmission Date: 20160526
  Serious: Yes (Hospitalization)
  Sender: FDA-Public Use
  Company Number: IT-TEVA-627462ACC

PATIENT
  Age: 38 Year
  Sex: Male

DRUGS (3)
  1. BLEOPRIM - 15 MG POLVERE PER SOLUZIONE INIETTABILE [Suspect]
     Active Substance: BLEOMYCIN SULFATE
     Indication: TESTIS CANCER
     Dosage: 30 MG CYCLICAL
     Route: 042
     Dates: start: 20151130, end: 20151204
  2. ETOPOSIDE TEVA - 10 ML 20MG/ML - TEVA PHARMA B.V. [Suspect]
     Active Substance: ETOPOSIDE
     Indication: TESTIS CANCER
     Dosage: 170 MG CYCLICAL
     Route: 042
     Dates: start: 20151130, end: 20151204
  3. CISPLATINO TEVA ITALIA [Suspect]
     Active Substance: CISPLATIN
     Indication: TESTIS CANCER
     Dosage: 35 MG CYCLICAL
     Route: 042
     Dates: start: 20151130, end: 20151204

REACTIONS (2)
  - Pancytopenia [Unknown]
  - Pyrexia [Unknown]

NARRATIVE: CASE EVENT DATE: 20151217
